FAERS Safety Report 5886191-4 (Version None)
Quarter: 2008Q3

REPORT INFORMATION
  Report Type: 
  Country: None (occurrence: None)
  Receive Date: 20080917
  Receipt Date: 20080905
  Transmission Date: 20090109
  Serious: Yes (Other)
  Sender: FDA-Public Use
  Company Number: BR-ROCHE-536551

PATIENT
  Sex: Male
  Weight: 72 kg

DRUGS (3)
  1. ROACUTAN [Suspect]
     Indication: ACNE
     Dosage: STRENGTH: 20 MG
     Route: 048
     Dates: start: 20070801
  2. ROACUTAN [Suspect]
     Dosage: DISCONTINUED FOR FIFTEEN DAYS
     Route: 048
  3. ROACUTAN [Suspect]
     Dosage: STRENGTH: 10 OR 20 MG; DOSE REDUCED
     Route: 048
     Dates: end: 20080401

REACTIONS (4)
  - BLOOD CHOLESTEROL ABNORMAL [None]
  - EYE DISORDER [None]
  - PERIORBITAL HAEMATOMA [None]
  - RASH [None]
